FAERS Safety Report 17125048 (Version 1)
Quarter: 2019Q4

REPORT INFORMATION
  Report Type: Spontaneous
  Country: CA (occurrence: CA)
  Receive Date: 20191206
  Receipt Date: 20191206
  Transmission Date: 20200122
  Serious: Yes (Other)
  Sender: FDA-Public Use
  Company Number: CA-B.BRAUN MEDICAL INC.-2077569

PATIENT
  Age: 47 Year
  Sex: Male

DRUGS (1)
  1. SODIUM CHLORIDE INJECTION USP 0264-7800-09 [Suspect]
     Active Substance: SODIUM CHLORIDE
     Indication: BLOOD PRESSURE DECREASED
     Route: 042

REACTIONS (1)
  - Unresponsive to stimuli [Unknown]
